FAERS Safety Report 7435720-8 (Version None)
Quarter: 2011Q2

REPORT INFORMATION
  Report Type: 
  Country: None (occurrence: None)
  Receive Date: 20110425
  Receipt Date: 20110418
  Transmission Date: 20111010
  Serious: Yes (Other)
  Sender: FDA-Public Use
  Company Number: US-CEPHALON-2011001932

PATIENT
  Sex: Female
  Weight: 81 kg

DRUGS (10)
  1. MOBIC [Concomitant]
  2. NUVIGIL [Suspect]
     Route: 048
     Dates: start: 20100901
  3. ULTRAM [Concomitant]
     Dates: start: 20080101
  4. NUVIGIL [Suspect]
     Indication: SLEEP APNOEA SYNDROME
     Route: 048
     Dates: start: 20090101, end: 20100901
  5. HYDROCHLOROTHIAZIDE [Concomitant]
  6. LEXAPRO [Concomitant]
     Dates: start: 20020101
  7. ATENOLOL [Concomitant]
  8. CRESTOR [Concomitant]
  9. MEDROL [Concomitant]
     Dates: start: 20100101, end: 20100101
  10. GLUCOPHAGE [Concomitant]
     Dates: start: 20070101

REACTIONS (6)
  - SYNCOPE [None]
  - DIZZINESS [None]
  - BLOOD POTASSIUM DECREASED [None]
  - DYSKINESIA [None]
  - DRUG INEFFECTIVE [None]
  - ASTHENIA [None]
